FAERS Safety Report 13357828 (Version 1)
Quarter: 2017Q1

REPORT INFORMATION
  Report Type: Spontaneous
  Country: US (occurrence: US)
  Receive Date: 20170322
  Receipt Date: 20170322
  Transmission Date: 20170429
  Serious: No
  Sender: FDA-Public Use
  Company Number: US-PFIZER INC-2017117934

PATIENT
  Age: 45 Year
  Sex: Female
  Weight: 98.88 kg

DRUGS (11)
  1. TIZANIDINE. [Concomitant]
     Active Substance: TIZANIDINE
     Indication: MUSCLE RELAXANT THERAPY
     Dosage: 4 MG, [1-2 TIMES PER DAY]
  2. FOSTEUM PLUS [Concomitant]
     Indication: MENOPAUSE
     Dosage: 1 DF, DAILY
     Dates: start: 20170308
  3. LYRICA [Suspect]
     Active Substance: PREGABALIN
     Dosage: 75 MG, 1X/DAY
     Dates: start: 20170309, end: 20170309
  4. TRAMADOL. [Concomitant]
     Active Substance: TRAMADOL
     Indication: SLEEP DISORDER
     Dosage: 50 MG, AS NEEDED [1-3 TIMES PER DAY]
  5. L-THYROXINE [Concomitant]
     Active Substance: LEVOTHYROXINE
     Indication: HYPOTHYROIDISM
     Dosage: 175 UG, 1X/DAY
  6. BUPROPION. [Concomitant]
     Active Substance: BUPROPION
     Dosage: 100 MG, 1X/DAY
  7. HYDROXYQUINOLINE [Concomitant]
     Indication: RHEUMATOID ARTHRITIS
     Dosage: 200 MG, 2X/DAY
  8. XELJANZ XR [Concomitant]
     Active Substance: TOFACITINIB CITRATE
     Indication: RHEUMATOID ARTHRITIS
     Dosage: 11 MG, 1X/DAY
  9. LYRICA [Suspect]
     Active Substance: PREGABALIN
     Indication: NEURALGIA
     Dosage: 150 MG, DAILY
     Dates: start: 20170308, end: 20170308
  10. CARISOPRODOL. [Concomitant]
     Active Substance: CARISOPRODOL
     Indication: MUSCLE RELAXANT THERAPY
     Dosage: 350 MG, UNK [1-2 TIMES PER DAY]
  11. DULOXETINE. [Concomitant]
     Active Substance: DULOXETINE
     Dosage: 60 MG, 2X/DAY

REACTIONS (9)
  - Speech disorder [Unknown]
  - Myopia [Unknown]
  - Confusional state [Unknown]
  - Amnesia [Unknown]
  - Contusion [Unknown]
  - Abnormal behaviour [Unknown]
  - Fall [Unknown]
  - Dysarthria [Unknown]
  - Balance disorder [Unknown]

NARRATIVE: CASE EVENT DATE: 20170310
